FAERS Safety Report 17887565 (Version 1)
Quarter: 2020Q2

REPORT INFORMATION
  Report Type: Spontaneous
  Country: US (occurrence: US)
  Receive Date: 20200611
  Receipt Date: 20200611
  Transmission Date: 20200714
  Serious: Yes (Hospitalization)
  Sender: FDA-Public Use
  Company Number: US-GILEAD-2020-0470402

PATIENT
  Age: 66 Year
  Sex: Male
  Weight: 76.7 kg

DRUGS (12)
  1. ENOXAPARIN [Concomitant]
     Active Substance: ENOXAPARIN
  2. CEFTRIAXONE. [Concomitant]
     Active Substance: CEFTRIAXONE
  3. ACETAMINOPHEN. [Concomitant]
     Active Substance: ACETAMINOPHEN
  4. HEPARIN [Concomitant]
     Active Substance: HEPARIN SODIUM
  5. LACTATED RINGERS SOLUTION [Concomitant]
     Active Substance: CALCIUM CHLORIDE\POTASSIUM CHLORIDE\SODIUM CHLORIDE\SODIUM LACTATE
  6. SODIUM CHLORIDE + DEXTROSE [Concomitant]
  7. REMDESIVIR. [Suspect]
     Active Substance: REMDESIVIR
     Indication: COVID-19
     Dosage: 200 MG, QD
     Route: 042
     Dates: start: 20200525, end: 20200525
  8. REMDESIVIR. [Suspect]
     Active Substance: REMDESIVIR
     Dosage: 100 MG, QD
     Route: 042
     Dates: start: 20200526, end: 20200529
  9. AMLODIPINE [Concomitant]
     Active Substance: AMLODIPINE BESYLATE
  10. BENZONATATE. [Concomitant]
     Active Substance: BENZONATATE
  11. DEXTROMETHORPHAN [Concomitant]
     Active Substance: DEXTROMETHORPHAN
  12. GUAIFENESIN. [Concomitant]
     Active Substance: GUAIFENESIN

REACTIONS (1)
  - Transaminases increased [Recovering/Resolving]

NARRATIVE: CASE EVENT DATE: 20200529
